FAERS Safety Report 6533355-2 (Version None)
Quarter: 2010Q1

REPORT INFORMATION
  Report Type: 
  Country: None (occurrence: None)
  Receive Date: 20100111
  Receipt Date: 20100106
  Transmission Date: 20100710
  Serious: Yes (Death)
  Sender: FDA-Public Use
  Company Number: B0624069A

PATIENT
  Age: 56 Year
  Sex: Female

DRUGS (5)
  1. LAMOTRIGINE [Suspect]
     Dosage: 150MG PER DAY
     Route: 048
     Dates: start: 20040901
  2. SEROQUEL [Suspect]
     Dosage: 700MG PER DAY
     Route: 048
     Dates: start: 20040701
  3. VALPROATE SODIUM [Suspect]
     Dosage: 1G PER DAY
     Route: 048
     Dates: start: 20040801
  4. CITALOPRAM HYDROBROMIDE [Suspect]
     Indication: DEPRESSION
     Dates: start: 20050401
  5. LISINOPRIL [Concomitant]
     Indication: HYPERTENSION
     Route: 048

REACTIONS (1)
  - COMPLETED SUICIDE [None]
